FAERS Safety Report 16893701 (Version 2)
Quarter: 2019Q4

REPORT INFORMATION
  Report Type: Spontaneous
  Country: ES (occurrence: ES)
  Receive Date: 20191008
  Receipt Date: 20191220
  Transmission Date: 20200122
  Serious: Yes (Hospitalization)
  Sender: FDA-Public Use
  Company Number: ES-PFIZER INC-2019427144

PATIENT
  Age: 19 Year
  Sex: Female

DRUGS (7)
  1. ACETYLSALICYLATE LYSINE [Concomitant]
     Active Substance: ASPIRIN DL-LYSINE
     Indication: THROMBOSIS PROPHYLAXIS
     Dosage: 225 MG, 1X/DAY (225 MG, 1X/DAY || DOSAGE UNIT FREQUENCY: 225 MG-MILLIGRAMS || FREQUENCY UNIT: 1 DAY)
     Route: 042
     Dates: start: 20140328
  2. ESOMEPRAZOLE. [Concomitant]
     Active Substance: ESOMEPRAZOLE MAGNESIUM
     Indication: PROPHYLAXIS AGAINST GASTROINTESTINAL ULCER
     Dosage: 20 MG, 1X/DAY (1 CAPSULE, 1X/DAY || DOSAGE UNIT FREQUENCY: 20 MG-MILLIGRAMS || DOSAGE PER TAKE: 20 M
     Route: 048
     Dates: start: 20140405
  3. REMIFENTANIL [Suspect]
     Active Substance: REMIFENTANIL
     Indication: SEDATION
     Dosage: 5 MG, 1X/DAY (5 MG IN BODY WEIGHT || DOSAGE UNIT FREQUENCY: 5 MG-MILLIGRAMS || FREQUENCY UNIT: 0 DAY
     Route: 041
     Dates: start: 20140331, end: 20140404
  4. CLORAZEPATE DIPOTASSIUM. [Concomitant]
     Active Substance: CLORAZEPATE DIPOTASSIUM
     Indication: ANXIETY
     Dosage: 25 MG, 3X/DAY (25 MG/8H || DOSAGE UNIT FREQUENCY: 75 MG-MILLIGRAMS || DOSAGE PER TAKE: 25 MG-MILLIGR
     Route: 048
     Dates: start: 20140403
  5. PROPOFOL. [Suspect]
     Active Substance: PROPOFOL
     Indication: SEDATION
     Dosage: 1 G, 1X/DAY (1GR IN BODY WEIGHT || DOSAGE UNIT FREQUENCY: 1 G-GRAM || UNIT FREQUENCY: 0 DAY)
     Route: 041
     Dates: start: 20140327, end: 20140403
  6. AMOXICILLIN/CLAVULANIC ACID [Suspect]
     Active Substance: AMOXICILLIN\CLAVULANIC ACID
     Indication: POST PROCEDURAL INFECTION
     Dosage: 1 G, 3X/DAY (1GR/8H ||DOSAGE UNIT FREQUENCY: 3 G-GRAMS || DOSAGE PER TAKE: 1 G-GRAM || N? OF TAKES P
     Route: 042
     Dates: start: 20140327, end: 20140408
  7. MIRTAZAPINA [Concomitant]
     Active Substance: MIRTAZAPINE
     Indication: DEPRESSION
     Dosage: 30 MG, 1X/DAY (30MG, 1X/DAY  || DOSAGE UNIT FREQUENCY: 30 MG-MILLIGRAMS ||DOSAGE PER TAKE: 30 MG-MIL
     Route: 048
     Dates: start: 20140403

REACTIONS (1)
  - Hepatitis acute [Recovered/Resolved]

NARRATIVE: CASE EVENT DATE: 20140408
